FAERS Safety Report 10456079 (Version 1)
Quarter: 2014Q3

REPORT INFORMATION
  Report Type: Spontaneous
  Country: NL (occurrence: NL)
  Receive Date: 20140916
  Receipt Date: 20140916
  Transmission Date: 20150326
  Serious: Yes (Other)
  Sender: FDA-Public Use
  Company Number: NL-TEVA-508391ISR

PATIENT
  Age: 42 Year
  Sex: Female

DRUGS (6)
  1. QUETIAPINE [Suspect]
     Active Substance: QUETIAPINE
     Indication: SUICIDE ATTEMPT
     Route: 065
  2. FLURAZEPAM [Suspect]
     Active Substance: FLURAZEPAM\FLURAZEPAM HYDROCHLORIDE
     Indication: SUICIDE ATTEMPT
     Route: 065
  3. INSULIN [Concomitant]
     Active Substance: INSULIN NOS
     Indication: SUICIDE ATTEMPT
     Route: 065
  4. ETOMIDATE. [Concomitant]
     Active Substance: ETOMIDATE
     Indication: NEUROLEPTIC MALIGNANT SYNDROME
     Route: 065
  5. DULOXETINE [Concomitant]
     Active Substance: DULOXETINE
     Indication: SUICIDE ATTEMPT
     Route: 065
  6. SUXAMETHONIUM [Suspect]
     Active Substance: SUCCINYLCHOLINE
     Indication: NEUROLEPTIC MALIGNANT SYNDROME
     Dosage: 1.2MG/KG
     Route: 065

REACTIONS (5)
  - Hyperkalaemia [Recovered/Resolved]
  - Altered state of consciousness [Unknown]
  - Neuroleptic malignant syndrome [Recovering/Resolving]
  - Ventricular fibrillation [Recovered/Resolved]
  - Toxicity to various agents [Unknown]
